FAERS Safety Report 10671868 (Version 13)
Quarter: 2020Q4

REPORT INFORMATION
  Report Type: Report from Study
  Country: JP (occurrence: JP)
  Receive Date: 20141223
  Receipt Date: 20201026
  Transmission Date: 20210113
  Serious: Yes (Death, Life-Threatening, Hospitalization, Other)
  Sender: FDA-Public Use
  Company Number: JP-INCYTE CORPORATION-2014IN003979

PATIENT

DRUGS (10)
  1. HYDREA [Suspect]
     Active Substance: HYDROXYUREA
     Indication: NEPHROGENIC ANAEMIA
  2. JAKAVI [Suspect]
     Active Substance: RUXOLITINIB
     Dosage: 5 MG, QD
     Route: 048
     Dates: start: 20150827, end: 20150917
  3. JAKAVI [Suspect]
     Active Substance: RUXOLITINIB
     Indication: MYELOFIBROSIS
     Dosage: 10 MG, BID
     Route: 048
     Dates: start: 20141022, end: 20141119
  4. JAKAVI [Suspect]
     Active Substance: RUXOLITINIB
     Dosage: 2 TABLETS IN THE MORNING, 1 TABLET IN THE EVENING
     Route: 048
     Dates: start: 20150423, end: 20150520
  5. JAKAVI [Suspect]
     Active Substance: RUXOLITINIB
     Dosage: 5 MG, BID
     Route: 048
     Dates: start: 20150521, end: 20150826
  6. JAKAVI [Suspect]
     Active Substance: RUXOLITINIB
     Dosage: 5 MG, BIW
     Route: 048
     Dates: start: 20151118, end: 20160222
  7. JAKAVI [Suspect]
     Active Substance: RUXOLITINIB
     Dosage: 5 MG, BID
     Route: 048
     Dates: start: 20141120, end: 20150422
  8. JAKAVI [Suspect]
     Active Substance: RUXOLITINIB
     Dosage: 5 MG, TIW
     Route: 048
     Dates: start: 20150924, end: 20151117
  9. HYDREA [Suspect]
     Active Substance: HYDROXYUREA
     Indication: MYELOFIBROSIS
     Dosage: 500 MG, QD
     Route: 048
     Dates: start: 20150520, end: 20160317
  10. JAKAVI [Suspect]
     Active Substance: RUXOLITINIB
     Dosage: 5 MG, QW
     Route: 048
     Dates: start: 20160224, end: 20160307

REACTIONS (11)
  - Nephrogenic anaemia [Recovered/Resolved]
  - Weight increased [Unknown]
  - Platelet count decreased [Not Recovered/Not Resolved]
  - Haemoglobin decreased [Recovered/Resolved]
  - Concomitant disease aggravated [Recovered/Resolved]
  - Blood urea increased [Recovered/Resolved]
  - White blood cell count increased [Unknown]
  - Blood count abnormal [Unknown]
  - Anaemia [Recovering/Resolving]
  - Gastrointestinal haemorrhage [Fatal]
  - Cardiac failure [Recovering/Resolving]

NARRATIVE: CASE EVENT DATE: 20141022
